FAERS Safety Report 8224861-3 (Version None)
Quarter: 2012Q1

REPORT INFORMATION
  Report Type: 
  Country: None (occurrence: None)
  Receive Date: 20120319
  Receipt Date: 20120308
  Transmission Date: 20120608
  Serious: Yes (Hospitalization)
  Sender: FDA-Public Use
  Company Number: 2012MA003369

PATIENT
  Age: 40 Year
  Sex: Male

DRUGS (1)
  1. LOSARTAN POTASSIUM [Suspect]
     Indication: HYPERTENSION
     Dosage: 50 MG; ;PO
     Route: 048
     Dates: start: 20111202, end: 20111202

REACTIONS (2)
  - PETECHIAE [None]
  - CONVULSION [None]
